FAERS Safety Report 19642281 (Version 2)
Quarter: 2021Q3

REPORT INFORMATION
  Report Type: Spontaneous
  Country: US (occurrence: US)
  Receive Date: 20210730
  Receipt Date: 20210806
  Transmission Date: 20211014
  Serious: No
  Sender: FDA-Public Use
  Company Number: US-SA-2021SA248070

PATIENT
  Age: 59 Year
  Sex: Female

DRUGS (1)
  1. DUPIXENT [Suspect]
     Active Substance: DUPILUMAB
     Indication: DERMATITIS ATOPIC
     Dosage: 300 MG, QOW
     Route: 058

REACTIONS (8)
  - Flatulence [Unknown]
  - Arthritis [Unknown]
  - Pain [Unknown]
  - Abdominal pain upper [Unknown]
  - Injection site pain [Unknown]
  - Dry eye [Unknown]
  - Wound [Unknown]
  - Eczema [Unknown]
